FAERS Safety Report 5655324 (Version 4)
Quarter: 2013Q3

REPORT INFORMATION
  Report Type: Other
  Country: JP (occurrence: JP)
  Receive Date: 20041029
  Receipt Date: 20130913
  Transmission Date: 20140515
  Serious: Yes (Other)
  Sender: FDA-Public Use
  Company Number: JP-BRISTOL-MYERS SQUIBB COMPANY-12735569

PATIENT
  Age: 33 Year
  Sex: Female

DRUGS (3)
  1. BRIPLATIN [Suspect]
     Indication: OVARIAN GERM CELL ENDODERMAL SINUS TUMOUR STAGE I
     Route: 042
  2. BLEOMYCIN SULFATE [Suspect]
     Indication: OVARIAN GERM CELL ENDODERMAL SINUS TUMOUR STAGE I
     Route: 030
  3. VINBLASTINE [Suspect]
     Indication: OVARIAN GERM CELL ENDODERMAL SINUS TUMOUR STAGE I
     Route: 042

REACTIONS (12)
  - Foetal growth restriction [None]
  - Hypertension [None]
  - Coagulopathy [None]
  - Fibrinolysis [None]
  - Oligohydramnios [None]
  - Renal impairment [None]
  - Thrombocytopenia [None]
  - Pregnancy [None]
  - Premature baby [None]
  - Normal newborn [None]
  - Hepatic neoplasm [None]
  - Peritoneal neoplasm [None]
